FAERS Safety Report 20216009 (Version 7)
Quarter: 2022Q3

REPORT INFORMATION
  Report Type: Spontaneous
  Country: JP (occurrence: JP)
  Receive Date: 20211222
  Receipt Date: 20220810
  Transmission Date: 20221027
  Serious: Yes (Life-Threatening, Hospitalization, Other)
  Sender: FDA-Public Use
  Company Number: JP-BRISTOL-MYERS SQUIBB COMPANY-BMS-2021-133282

PATIENT
  Age: 61 Year
  Sex: Male
  Weight: 61.8 kg

DRUGS (8)
  1. YERVOY [Suspect]
     Active Substance: IPILIMUMAB
     Indication: Non-small cell lung cancer recurrent
     Dosage: 73 MG, Q3W
     Route: 041
     Dates: start: 20211109
  2. YERVOY [Suspect]
     Active Substance: IPILIMUMAB
  3. YERVOY [Suspect]
     Active Substance: IPILIMUMAB
  4. YERVOY [Suspect]
     Active Substance: IPILIMUMAB
  5. OPDIVO [Suspect]
     Active Substance: NIVOLUMAB
     Indication: Non-small cell lung cancer recurrent
     Route: 041
     Dates: start: 20211109
  6. OPDIVO [Suspect]
     Active Substance: NIVOLUMAB
  7. AMITIZA [Concomitant]
     Active Substance: LUBIPROSTONE
     Dosage: 24 UG
     Route: 048
     Dates: start: 20220101, end: 20220101
  8. AMITIZA [Concomitant]
     Active Substance: LUBIPROSTONE
     Indication: Product used for unknown indication

REACTIONS (5)
  - Encephalitis [Recovered/Resolved with Sequelae]
  - Hypothyroidism [Recovering/Resolving]
  - Immune-mediated dermatitis [Recovering/Resolving]
  - CSF cell count increased [Unknown]
  - Urinary retention [Unknown]

NARRATIVE: CASE EVENT DATE: 20211205
